FAERS Safety Report 24759538 (Version 1)
Quarter: 2024Q4

REPORT INFORMATION
  Report Type: Spontaneous
  Country: CA (occurrence: CA)
  Receive Date: 20241220
  Receipt Date: 20241220
  Transmission Date: 20250115
  Serious: Yes (Other)
  Sender: CSL BEHRING
  Company Number: CA-BEH-2024187500

PATIENT
  Age: 27 Year
  Sex: Female
  Weight: 82 kg

DRUGS (5)
  1. HUMAN C1-ESTERASE INHIBITOR [Suspect]
     Active Substance: HUMAN C1-ESTERASE INHIBITOR
     Indication: Prophylaxis
     Dosage: 3000 IU, 1 EVERY 2 WEEKS
     Route: 058
  2. HUMAN C1-ESTERASE INHIBITOR [Suspect]
     Active Substance: HUMAN C1-ESTERASE INHIBITOR
     Indication: Hereditary angioedema
     Dosage: 5000 IU, 1 EVERY 2 WEEKS
     Route: 058
  3. HUMAN C1-ESTERASE INHIBITOR [Suspect]
     Active Substance: HUMAN C1-ESTERASE INHIBITOR
     Indication: Off label use
     Dosage: 5000 IU, 1 EVERY 2 WEEKS
     Route: 058
  4. HUMAN C1-ESTERASE INHIBITOR [Suspect]
     Active Substance: HUMAN C1-ESTERASE INHIBITOR
     Dosage: 1 EVERY 2 WEEKS
     Route: 058
  5. TAKHZYRO [Concomitant]
     Active Substance: LANADELUMAB-FLYO
     Route: 058

REACTIONS (6)
  - Hereditary angioedema [Recovered/Resolved]
  - Urticaria [Recovered/Resolved]
  - Aspartate aminotransferase increased [Recovered/Resolved]
  - Prescribed underdose [Recovered/Resolved]
  - Off label use [Unknown]
  - Off label use [Unknown]
